FAERS Safety Report 7294447-6 (Version None)
Quarter: 2011Q1

REPORT INFORMATION
  Report Type: 
  Country: None (occurrence: None)
  Receive Date: 20110216
  Receipt Date: 20110203
  Transmission Date: 20110831
  Serious: Yes (Life-Threatening, Other)
  Sender: FDA-Public Use
  Company Number: NL-AMGEN-NLDSP2011003005

PATIENT
  Age: 56 Year
  Sex: Female
  Weight: 76 kg

DRUGS (15)
  1. DIURETICS [Concomitant]
     Dosage: UNK
  2. PARACETAMOL WITH CODEINE PHOSPHATE [Concomitant]
     Dosage: 500/10 MG  3 TO 4 TIMES PER DAY
     Dates: start: 20101111
  3. CALCICHEW-D3 [Concomitant]
     Dosage: 1G/800 IE 1X/DAY
     Dates: start: 20101125
  4. BUTRANS [Concomitant]
     Dosage: 5 MCG/HOUR
     Dates: start: 20110103
  5. FERROGRADUMET                      /00023503/ [Concomitant]
     Dosage: 105 MG, 1X/DAY
     Dates: start: 20101220
  6. NOVOMIX                            /01475801/ [Concomitant]
     Indication: DIABETES MELLITUS
     Dosage: 3 ML, UNK
     Dates: start: 20101026
  7. COAPROVEL [Concomitant]
     Dosage: 300/25 MG 1X/DAY
     Dates: start: 20110103
  8. OMEPRAZOLE [Concomitant]
     Dosage: 20 MG, 1X/DAY
     Dates: start: 20101212
  9. PREDNISONE TAB [Concomitant]
     Indication: RHEUMATOID ARTHRITIS
     Dosage: 10 MG, UNK
     Route: 048
     Dates: start: 20101221
  10. FOLIC ACID [Concomitant]
     Dosage: 5 MG, WEEKLY
     Dates: start: 20101111
  11. KETOTIFEN FUMARATE [Concomitant]
     Dosage: 2.0 ML, 2X/DAY
     Dates: start: 20110103
  12. INSULIN [Concomitant]
     Indication: DIABETES MELLITUS
     Dosage: UNK UNK, BID
  13. FUROSEMIDE [Concomitant]
     Dosage: 40 MG, UNK
     Route: 048
     Dates: start: 20100909
  14. ENBREL [Suspect]
     Indication: RHEUMATOID ARTHRITIS
     Dosage: 50 MG, WEEKLY
     Route: 058
     Dates: start: 20101215
  15. VITAMIN B COMPLEX                  /00003501/ [Concomitant]
     Dosage: UNK
     Dates: start: 20101125

REACTIONS (3)
  - BACTERIURIA [None]
  - LOSS OF CONSCIOUSNESS [None]
  - PARAESTHESIA [None]
